FAERS Safety Report 16739136 (Version 2)
Quarter: 2019Q3

REPORT INFORMATION
  Report Type: Report from Study
  Country: DE (occurrence: DE)
  Receive Date: 20190826
  Receipt Date: 20190830
  Transmission Date: 20191005
  Serious: Yes (Hospitalization)
  Sender: FDA-Public Use
  Company Number: DE-ROCHE-2379847

PATIENT
  Age: 58 Year
  Sex: Female
  Weight: 98 kg

DRUGS (9)
  1. NOVALGIN (METAMIZOLE SODIUM) [Concomitant]
     Active Substance: METAMIZOLE SODIUM
     Indication: PAIN
     Route: 065
     Dates: start: 20181003
  2. PACLITAXEL. [Suspect]
     Active Substance: PACLITAXEL
     Indication: OVARIAN CANCER
     Dosage: MOST RECENT DOSE ON 13/DEC/2018, 350 MG
     Route: 042
     Dates: start: 20180830
  3. CARBOPLATIN. [Suspect]
     Active Substance: CARBOPLATIN
     Indication: OVARIAN CANCER
     Dosage: 6 MILLIGRAMS PER MILLILITER*MINUTE (MG/ML*MIN) ?MOST RECENT DOSE ON 13/DEC/2018, 880 MG
     Route: 042
     Dates: start: 20180830
  4. OMEPRAZOL [OMEPRAZOLE] [Concomitant]
     Active Substance: OMEPRAZOLE
     Route: 065
     Dates: start: 2008
  5. KALINOR [CITRIC ACID;POTASSIUM BICARBONATE;POTASSIUM CITRATE] [Concomitant]
     Active Substance: CITRIC ACID MONOHYDRATE\POTASSIUM BICARBONATE\POTASSIUM CITRATE
     Indication: HYPOKALAEMIA
     Route: 065
     Dates: start: 20190307
  6. BEVACIZUMAB. [Suspect]
     Active Substance: BEVACIZUMAB
     Indication: OVARIAN CANCER
     Dosage: MOST RECENT DOSE ON 13/DEC/2018, 1500 MG
     Route: 042
     Dates: start: 20180920
  7. BLINDED ATEZOLIZUMAB [Suspect]
     Active Substance: ATEZOLIZUMAB
     Indication: OVARIAN CANCER
     Dosage: MOST RECENT DOSE ON 18/JUN/2019
     Route: 042
     Dates: start: 20180830
  8. OVESTIN [Concomitant]
     Active Substance: ESTRIOL
     Indication: MUCOSAL DRYNESS
     Route: 065
     Dates: start: 20190328
  9. CANDESARTAN. [Concomitant]
     Active Substance: CANDESARTAN
     Indication: HYPERTENSION
     Route: 065
     Dates: start: 2011

REACTIONS (1)
  - Foot fracture [Not Recovered/Not Resolved]

NARRATIVE: CASE EVENT DATE: 20190619
